FAERS Safety Report 23182925 (Version 1)
Quarter: 2023Q4

REPORT INFORMATION
  Report Type: Spontaneous
  Country: US (occurrence: US)
  Receive Date: 20231114
  Receipt Date: 20231114
  Transmission Date: 20240110
  Serious: No
  Sender: FDA-Public Use
  Company Number: US-SA-SAC20231108000515

PATIENT
  Age: 58 Year
  Sex: Female

DRUGS (20)
  1. DUPIXENT [Suspect]
     Active Substance: DUPILUMAB
     Indication: Dermatitis atopic
     Dosage: DOSE: 300 MG/2ML FREQUENCY: 300 MG/2ML: INJECT 1 PEN UNDER THE SKIN (SUBCUTANEOUS INJECTION) ONCE EV
     Route: 058
     Dates: start: 20230309
  2. DUPIXENT [Suspect]
     Active Substance: DUPILUMAB
     Indication: Eczema
  3. ATORVASTATIN [Concomitant]
     Active Substance: ATORVASTATIN
  4. BENAZEPRIL [Concomitant]
     Active Substance: BENAZEPRIL HYDROCHLORIDE
     Indication: Hypertension
  5. BUSPIRONE [Concomitant]
     Active Substance: BUSPIRONE HYDROCHLORIDE
  6. DICLOFENAC [Concomitant]
     Active Substance: DICLOFENAC
  7. HUMIRA [Concomitant]
     Active Substance: ADALIMUMAB
  8. LIDOCAINE [Concomitant]
     Active Substance: LIDOCAINE
  9. LORATADINE [Concomitant]
     Active Substance: LORATADINE
  10. METFORMIN [Concomitant]
     Active Substance: METFORMIN HYDROCHLORIDE
  11. NAPROXEN [Concomitant]
     Active Substance: NAPROXEN
  12. OXYBUTYNIN [Concomitant]
     Active Substance: OXYBUTYNIN
  13. PAROXETINE [Concomitant]
     Active Substance: PAROXETINE
  14. PROPRANOLOL [Concomitant]
     Active Substance: PROPRANOLOL HYDROCHLORIDE
  15. QVAR REDIHALER [Concomitant]
     Active Substance: BECLOMETHASONE DIPROPIONATE
  16. STEGLATRO [Concomitant]
     Active Substance: ERTUGLIFLOZIN PIDOLATE
  17. TACROLIMUS [Concomitant]
     Active Substance: TACROLIMUS
  18. VENTOLIN HFA [Concomitant]
     Active Substance: ALBUTEROL SULFATE
  19. AMITRIPTYLINE [Concomitant]
     Active Substance: AMITRIPTYLINE
  20. ATORVASTATIN [Concomitant]
     Active Substance: ATORVASTATIN

REACTIONS (1)
  - Product dose omission in error [Unknown]

NARRATIVE: CASE EVENT DATE: 20230101
